FAERS Safety Report 20289792 (Version 1)
Quarter: 2022Q1

REPORT INFORMATION
  Report Type: Spontaneous
  Country: CN (occurrence: CN)
  Receive Date: 20220104
  Receipt Date: 20220104
  Transmission Date: 20220423
  Serious: Yes (Other)
  Sender: FDA-Public Use
  Company Number: CN-BAXTER-2021BAX042544

PATIENT
  Age: 14 Year
  Sex: Male
  Weight: 62.5 kg

DRUGS (12)
  1. IFOSFAMIDE [Suspect]
     Active Substance: IFOSFAMIDE
     Indication: Malignant connective tissue neoplasm
     Dosage: 1-11 CYCLE OF VAC/IE CHEMOTHERAPY (PAST DRUG)
     Route: 041
  2. IFOSFAMIDE [Suspect]
     Active Substance: IFOSFAMIDE
     Dosage: (HOLOXAN) IFOSFAMIDE 4G + 0.9% SODIUM CHLORIDE 500ML (12TH CYCLE OF VAC/IE CHEMOTHERAPY)
     Route: 041
     Dates: start: 20211221, end: 20211224
  3. IFOSFAMIDE [Suspect]
     Active Substance: IFOSFAMIDE
     Dosage: DOSE RE-INTRODUCED, (HOLOXAN) IFOSFAMIDE DILUTED WITH 0.9% SODIUM CHLORIDE
     Route: 041
  4. SODIUM CHLORIDE [Suspect]
     Active Substance: SODIUM CHLORIDE
     Indication: Medication dilution
     Dosage: 1-11 CYCLE OF VAC/IE CHEMOTHERAPY (PAST DRUG)
     Route: 041
  5. SODIUM CHLORIDE [Suspect]
     Active Substance: SODIUM CHLORIDE
     Dosage: ETOPOSIDE 110 MG + 0.9% SODIUM CHLORIDE 500ML  (12TH CYCLE OF VAC/IE CHEMOTHERAPY)
     Route: 041
     Dates: start: 20211221, end: 20211224
  6. SODIUM CHLORIDE [Suspect]
     Active Substance: SODIUM CHLORIDE
     Dosage: ETOPOSIDE 60 MG + 0.9% SODIUM CHLORIDE 250ML  (12TH CYCLE OF VAC/IE CHEMOTHERAPY)
     Route: 041
     Dates: start: 20211221, end: 20211224
  7. SODIUM CHLORIDE [Suspect]
     Active Substance: SODIUM CHLORIDE
     Dosage: (HOLOXAN) IFOSFAMIDE 4G + 0.9% SODIUM CHLORIDE 500ML (12TH CYCLE OF VAC/IE CHEMOTHERAPY)
     Route: 041
     Dates: start: 20211221, end: 20211224
  8. SODIUM CHLORIDE [Suspect]
     Active Substance: SODIUM CHLORIDE
     Dosage: DOSE RE-INTRODUCED, 0.9% SODIUM CHLORIDE DILUTED WITH (HOLOXAN) IFOSFAMIDE AND ETOPOSIDE
     Route: 041
  9. ETOPOSIDE [Suspect]
     Active Substance: ETOPOSIDE
     Indication: Malignant connective tissue neoplasm
     Dosage: 1-11 CYCLE OF VAC/IE CHEMOTHERAPY
     Route: 041
  10. ETOPOSIDE [Suspect]
     Active Substance: ETOPOSIDE
     Dosage: ETOPOSIDE 110 MG + 0.9% SODIUM CHLORIDE 500ML  (12TH CYCLE OF VAC/IE CHEMOTHERAPY)
     Route: 041
     Dates: start: 20211221, end: 20211224
  11. ETOPOSIDE [Suspect]
     Active Substance: ETOPOSIDE
     Dosage: ETOPOSIDE 60 MG + 0.9% SODIUM CHLORIDE 250ML  (12TH CYCLE OF VAC/IE CHEMOTHERAPY)
     Route: 041
     Dates: start: 20211221, end: 20211224
  12. ETOPOSIDE [Suspect]
     Active Substance: ETOPOSIDE
     Dosage: DOSE RE-INTRODUCED, ETOPOSIDE INJECTION DILUTED WITH 0.9% SODIUM CHLORIDE
     Route: 041

REACTIONS (3)
  - Neutrophil count decreased [Unknown]
  - White blood cell count decreased [Unknown]
  - Neutrophil count decreased [Unknown]

NARRATIVE: CASE EVENT DATE: 20211224
